FAERS Safety Report 4578646-X (Version None)
Quarter: 2005Q1

REPORT INFORMATION
  Report Type: 
  Country: None (occurrence: None)
  Receive Date: 20050207
  Receipt Date: 20050207
  Transmission Date: 20050727
  Serious: Yes (Hospitalization)
  Sender: FDA-Public Use
  Company Number: None

PATIENT
  Age: 56 Year
  Sex: Female
  Weight: 99.7913 kg

DRUGS (16)
  1. GABITRIL [Suspect]
     Indication: NEUROPATHY PERIPHERAL
     Dosage: 12 MG   DAILY   ORAL
     Route: 048
     Dates: start: 20050115, end: 20050131
  2. AZMACORT [Concomitant]
  3. NASACORT [Concomitant]
  4. ELAVIL [Concomitant]
  5. CELEBREX [Concomitant]
  6. ACTOS [Concomitant]
  7. ALTACE [Concomitant]
  8. TICLID [Concomitant]
  9. CYCLOBENZAPRINE [Concomitant]
  10. TRAZADONE [Concomitant]
  11. CENTRUM MVI [Concomitant]
  12. SEROQUEL [Concomitant]
  13. SERZONE [Concomitant]
  14. IMDUR [Concomitant]
  15. SINGULAIR [Concomitant]
  16. EFFEXOR XR [Concomitant]

REACTIONS (2)
  - GRAND MAL CONVULSION [None]
  - SKIN LACERATION [None]
